FAERS Safety Report 20745161 (Version 7)
Quarter: 2023Q2

REPORT INFORMATION
  Report Type: Spontaneous
  Country: DE (occurrence: DE)
  Receive Date: 20220425
  Receipt Date: 20230511
  Transmission Date: 20230721
  Serious: Yes (Hospitalization, Other)
  Sender: FDA-Public Use
  Company Number: DE-NOVARTISPH-NVSC2022DE092926

PATIENT
  Age: 76 Year
  Sex: Female
  Weight: 63 kg

DRUGS (32)
  1. DEXAMETHASONE [Suspect]
     Active Substance: DEXAMETHASONE
     Indication: Plasma cell myeloma refractory
     Dosage: 20 MG, QW (INTERRUPTED) (WEEKLY FOR 2 CONSECUTIVE DAYS)
     Route: 065
     Dates: start: 20220124, end: 20220215
  2. DEXAMETHASONE [Suspect]
     Active Substance: DEXAMETHASONE
     Dosage: 20 MG, QW
     Route: 065
     Dates: start: 20220228, end: 20220322
  3. DEXAMETHASONE [Suspect]
     Active Substance: DEXAMETHASONE
     Dosage: UNK
     Route: 065
  4. DEXAMETHASONE [Suspect]
     Active Substance: DEXAMETHASONE
     Dosage: 20 MG, QW
     Route: 065
     Dates: start: 20220404, end: 20220404
  5. DEXAMETHASONE [Suspect]
     Active Substance: DEXAMETHASONE
     Dosage: 20 MG, QW
     Route: 065
     Dates: start: 20220420, end: 20220421
  6. DEXAMETHASONE [Suspect]
     Active Substance: DEXAMETHASONE
     Dosage: 20 MG, QW (INTERRUPTED) (WEEKLY FOR 2 CONSECUTIVE DAYS)
     Route: 065
     Dates: start: 20220504, end: 20220505
  7. DEXAMETHASONE [Suspect]
     Active Substance: DEXAMETHASONE
     Dosage: 20 MG, QW (WEEKLY FOR 2 CONSECUTIVE DAYS)
     Route: 065
     Dates: start: 20220518, end: 20220519
  8. DEXAMETHASONE [Suspect]
     Active Substance: DEXAMETHASONE
     Dosage: 20 MG, QW (WEEKLY FOR 2 CONSECUTIVE DAYS)
     Route: 065
     Dates: start: 20220704, end: 20220705
  9. DEXAMETHASONE [Suspect]
     Active Substance: DEXAMETHASONE
     Dosage: 20 MG, QW (WEEKLY FOR 2 CONSECUTIVE DAYS)
     Route: 065
     Dates: start: 20220801, end: 20220802
  10. ISATUXIMAB [Suspect]
     Active Substance: ISATUXIMAB
     Indication: Plasma cell myeloma refractory
     Dosage: 630 MG, QW
     Route: 065
     Dates: start: 20220124, end: 20220214
  11. ISATUXIMAB [Suspect]
     Active Substance: ISATUXIMAB
     Dosage: 1260 MG, QW (630 MG, BIW)
     Route: 065
     Dates: start: 20220228, end: 20220321
  12. ISATUXIMAB [Suspect]
     Active Substance: ISATUXIMAB
     Dosage: 1260 MG, QW, (630 MG, BIW)
     Route: 065
     Dates: start: 20220404, end: 20220404
  13. ISATUXIMAB [Suspect]
     Active Substance: ISATUXIMAB
     Dosage: 1260 MG, QW (630 MG, BIW (INTERRUPTED)
     Route: 065
     Dates: start: 20220504, end: 20220504
  14. ISATUXIMAB [Suspect]
     Active Substance: ISATUXIMAB
     Dosage: 1260 MG, QW (630 MG, BIW)
     Route: 065
     Dates: start: 20220420, end: 20220420
  15. ISATUXIMAB [Suspect]
     Active Substance: ISATUXIMAB
     Dosage: 1260 MG, QW (630 MG, BIW)
     Route: 065
     Dates: start: 20220518, end: 20220518
  16. ISATUXIMAB [Suspect]
     Active Substance: ISATUXIMAB
     Dosage: 1260 MG, QW (630 MG, BIW)
     Route: 065
     Dates: start: 20220704, end: 20220704
  17. ISATUXIMAB [Suspect]
     Active Substance: ISATUXIMAB
     Dosage: 1260 MG, QW (630 MG, BIW)
     Route: 065
     Dates: start: 20220801, end: 20220801
  18. CARFILZOMIB [Suspect]
     Active Substance: CARFILZOMIB
     Indication: Plasma cell myeloma refractory
     Dosage: 35 MG, QW
     Route: 065
     Dates: start: 20220124, end: 20220215
  19. CARFILZOMIB [Suspect]
     Active Substance: CARFILZOMIB
     Dosage: 35 MG PER CYCLE (WEEKLY FOR 2 CONSECUTIVE DAYS)
     Route: 065
     Dates: start: 20220228, end: 20220322
  20. CARFILZOMIB [Suspect]
     Active Substance: CARFILZOMIB
     Dosage: 99 MG, QW (INTERRUPTED)
     Route: 065
     Dates: start: 20220404, end: 20220404
  21. CARFILZOMIB [Suspect]
     Active Substance: CARFILZOMIB
     Dosage: 99 MG, QW (INTERRUPTED)
     Route: 065
     Dates: start: 20220504, end: 20220504
  22. CARFILZOMIB [Suspect]
     Active Substance: CARFILZOMIB
     Dosage: 99 MG, QW
     Route: 065
     Dates: start: 20220518, end: 20220519
  23. CARFILZOMIB [Suspect]
     Active Substance: CARFILZOMIB
     Dosage: 99 MG, QW (WEEKLY FOR 2 CONSECUTIVE DAYS)
     Route: 065
     Dates: start: 20220420, end: 20220421
  24. CARFILZOMIB [Suspect]
     Active Substance: CARFILZOMIB
     Dosage: 99 MG, QW
     Route: 065
     Dates: start: 20220704, end: 20220705
  25. CARFILZOMIB [Suspect]
     Active Substance: CARFILZOMIB
     Dosage: 99 MG, QW
     Route: 065
     Dates: start: 20220801, end: 20220802
  26. AMPHOTERICIN B [Concomitant]
     Active Substance: AMPHOTERICIN B
     Indication: Product used for unknown indication
     Dosage: UNK
     Route: 065
     Dates: start: 2021
  27. ASPIRIN [Concomitant]
     Active Substance: ASPIRIN
     Indication: Hypertonia
     Dosage: UNK
     Route: 065
     Dates: start: 2021, end: 20220510
  28. PREGABALIN [Concomitant]
     Active Substance: PREGABALIN
     Indication: Product used for unknown indication
     Dosage: UNK
     Route: 065
     Dates: start: 2021
  29. PASPERTIN [Concomitant]
     Indication: Antiemetic supportive care
     Dosage: UNK
     Route: 065
     Dates: start: 2021
  30. OCTAGAM IMMUNE GLOBULIN (HUMAN) [Concomitant]
     Active Substance: HUMAN IMMUNOGLOBULIN G
     Indication: Immunodeficiency
     Dosage: UNK
     Route: 065
     Dates: start: 20181219
  31. POLYETHYLENE GLYCOL 4000 [Concomitant]
     Active Substance: POLYETHYLENE GLYCOL 4000
     Indication: Product used for unknown indication
     Dosage: UNK
     Route: 065
     Dates: start: 2021
  32. LEVOFLOXACIN [Concomitant]
     Active Substance: LEVOFLOXACIN
     Indication: Product used for unknown indication
     Dosage: UNK
     Route: 065
     Dates: start: 20220711, end: 20220712

REACTIONS (6)
  - Pyrexia [Recovered/Resolved]
  - Secondary immunodeficiency [Not Recovered/Not Resolved]
  - Thrombocytopenia [Recovered/Resolved]
  - Polyneuropathy [Not Recovered/Not Resolved]
  - Leukopenia [Recovered/Resolved]
  - Anaemia [Recovered/Resolved]

NARRATIVE: CASE EVENT DATE: 20220221
